FAERS Safety Report 12568253 (Version 1)
Quarter: 2016Q3

REPORT INFORMATION
  Report Type: Report from Study
  Country: AR (occurrence: AR)
  Receive Date: 20160718
  Receipt Date: 20160718
  Transmission Date: 20161109
  Serious: Yes (Death, Hospitalization, Other)
  Sender: FDA-Public Use
  Company Number: AR-ABBVIE-16K-007-1647702-00

PATIENT
  Age: 60 Year
  Sex: Female

DRUGS (2)
  1. MEPREDNISONE [Concomitant]
     Active Substance: MEPREDNISONE
     Indication: CHRONIC OBSTRUCTIVE PULMONARY DISEASE
     Route: 048
     Dates: start: 20160301
  2. HUMIRA [Suspect]
     Active Substance: ADALIMUMAB
     Indication: RHEUMATOID ARTHRITIS
     Route: 058
     Dates: start: 20160225, end: 20160523

REACTIONS (4)
  - Lung infection [Fatal]
  - Chronic obstructive pulmonary disease [Fatal]
  - Pneumonia [Fatal]
  - Emphysema [Fatal]

NARRATIVE: CASE EVENT DATE: 201604
